FAERS Safety Report 6067926-7 (Version None)
Quarter: 2009Q1

REPORT INFORMATION
  Report Type: 
  Country: None (occurrence: None)
  Receive Date: 20090206
  Receipt Date: 20090126
  Transmission Date: 20090719
  Serious: Yes (Other)
  Sender: FDA-Public Use
  Company Number: BR-BAYER-200911663LA

PATIENT
  Age: 53 Year
  Sex: Female

DRUGS (1)
  1. BETAFERON [Suspect]
     Indication: RELAPSING-REMITTING MULTIPLE SCLEROSIS
     Route: 058
     Dates: start: 20080101

REACTIONS (7)
  - BLOOD PRESSURE FLUCTUATION [None]
  - DIABETES MELLITUS [None]
  - FEELING COLD [None]
  - JOINT STIFFNESS [None]
  - PAIN [None]
  - PYREXIA [None]
  - SYNCOPE [None]
